FAERS Safety Report 13345552 (Version 1)
Quarter: 2017Q1

REPORT INFORMATION
  Report Type: Spontaneous
  Country: JP (occurrence: JP)
  Receive Date: 20170317
  Receipt Date: 20170317
  Transmission Date: 20170428
  Serious: Yes (Hospitalization)
  Sender: FDA-Public Use
  Company Number: JP-BAYER-2017-013778

PATIENT
  Age: 46 Year
  Sex: Female
  Weight: 86.5 kg

DRUGS (2)
  1. MIRENA [Suspect]
     Active Substance: LEVONORGESTREL
     Indication: DYSMENORRHOEA
     Dosage: 20 MCG/24HR, CONT
     Route: 015
     Dates: start: 20150807, end: 20150907
  2. MIRENA [Suspect]
     Active Substance: LEVONORGESTREL
     Indication: ENDOMETRIOSIS

REACTIONS (9)
  - Endometriosis [Recovered/Resolved]
  - Abdominal pain lower [Recovered/Resolved]
  - C-reactive protein increased [Recovered/Resolved]
  - Peritonitis [Recovered/Resolved]
  - Peritoneal adhesions [Recovered/Resolved]
  - Back pain [Recovered/Resolved]
  - White blood cell count increased [Recovered/Resolved]
  - Pyrexia [Recovered/Resolved]
  - Haematosalpinx [Recovered/Resolved]

NARRATIVE: CASE EVENT DATE: 20150905
